FAERS Safety Report 9004486 (Version 2)
Quarter: 2013Q1

REPORT INFORMATION
  Report Type: Spontaneous
  Country: PL (occurrence: None)
  Receive Date: 20121227
  Receipt Date: 20130111
  Transmission Date: 20140127
  Serious: Yes (Other)
  Sender: FDA-Public Use
  Company Number: 219898

PATIENT
  Age: 56 Year
  Sex: Male

DRUGS (2)
  1. DAIVOBET [Suspect]
     Indication: GUTTATE PSORIASIS
     Dosage: ABOUT 2 CM OF OINTMENT
  2. CLOBETESOLUM (CLOBETASOL) [Concomitant]

REACTIONS (3)
  - Toxic epidermal necrolysis [None]
  - Drug administered at inappropriate site [None]
  - Off label use [None]
